FAERS Safety Report 9009459 (Version 1)
Quarter: 2013Q1

REPORT INFORMATION
  Report Type: Spontaneous
  Country: AU (occurrence: AU)
  Receive Date: 20130112
  Receipt Date: 20130112
  Transmission Date: 20140127
  Serious: Yes (Hospitalization)
  Sender: FDA-Public Use
  Company Number: AU-AMGEN-AUSSP2013001754

PATIENT
  Age: 69 Year
  Sex: Female

DRUGS (10)
  1. PROLIA [Suspect]
     Indication: PRODUCT USED FOR UNKNOWN INDICATION
     Dosage: 60 MG, Q6MO
     Dates: end: 20120606
  2. ASPIRIN [Concomitant]
  3. ATENOLOL [Concomitant]
  4. FRUSEMIDE                          /00032601/ [Concomitant]
  5. GLICLAZIDE [Concomitant]
  6. IRBESARTAN [Concomitant]
  7. NOVOMIX [Concomitant]
  8. ROSUVASTATIN [Concomitant]
  9. CHOLECALCIFEROL [Concomitant]
     Indication: HYPOCALCAEMIA
     Dosage: 5000 IU, UNK
  10. CALCIUM CARBONATE [Concomitant]
     Indication: HYPOCALCAEMIA

REACTIONS (4)
  - Muscle spasms [Not Recovered/Not Resolved]
  - Electrocardiogram QT prolonged [Not Recovered/Not Resolved]
  - Paraesthesia [Not Recovered/Not Resolved]
  - Hypocalcaemia [Not Recovered/Not Resolved]
